FAERS Safety Report 23698119 (Version 1)
Quarter: 2024Q2

REPORT INFORMATION
  Report Type: Spontaneous
  Country: GB (occurrence: GB)
  Receive Date: 20240402
  Receipt Date: 20240402
  Transmission Date: 20240716
  Serious: Yes (Hospitalization)
  Sender: FDA-Public Use
  Company Number: None

PATIENT
  Age: 73 Year
  Sex: Male

DRUGS (7)
  1. OMEPRAZOLE [Interacting]
     Active Substance: OMEPRAZOLE
     Dosage: MORNING
  2. EZETIMIBE [Concomitant]
     Active Substance: EZETIMIBE
     Dosage: NIGHT
  3. BISOPROLOL [Concomitant]
     Active Substance: BISOPROLOL\BISOPROLOL FUMARATE
     Dosage: MORNING
  4. ATORVASTATIN [Concomitant]
     Active Substance: ATORVASTATIN
     Dosage: AT NIGHT
  5. RAMIPRIL [Concomitant]
     Active Substance: RAMIPRIL
     Dosage: MORNING
  6. ASPIRIN [Concomitant]
     Active Substance: ASPIRIN
     Dosage: MORNING
  7. BUMETANIDE [Interacting]
     Active Substance: BUMETANIDE
     Dosage: MORNING

REACTIONS (2)
  - Hypomagnesaemia [Unknown]
  - Drug interaction [Unknown]
